FAERS Safety Report 24327142 (Version 1)
Quarter: 2024Q3

REPORT INFORMATION
  Report Type: Report from Study
  Country: IE (occurrence: IE)
  Receive Date: 20240917
  Receipt Date: 20240917
  Transmission Date: 20241016
  Serious: Yes (Other)
  Sender: MYLAN
  Company Number: IE-MYLANLABS-2024M1084147

PATIENT
  Age: 50 Year
  Sex: Male

DRUGS (18)
  1. CANDESARTAN [Suspect]
     Active Substance: CANDESARTAN
     Indication: Post-traumatic headache
     Dosage: UNK
     Route: 065
  2. CANDESARTAN [Suspect]
     Active Substance: CANDESARTAN
     Indication: Migraine prophylaxis
  3. VENLAFAXINE [Suspect]
     Active Substance: VENLAFAXINE HYDROCHLORIDE
     Indication: Post-traumatic headache
     Dosage: UNK
     Route: 065
  4. VENLAFAXINE [Suspect]
     Active Substance: VENLAFAXINE HYDROCHLORIDE
     Indication: Migraine prophylaxis
  5. VERAPAMIL [Suspect]
     Active Substance: VERAPAMIL HYDROCHLORIDE
     Indication: Post-traumatic headache
     Dosage: UNK
     Route: 065
  6. VERAPAMIL [Suspect]
     Active Substance: VERAPAMIL HYDROCHLORIDE
     Indication: Migraine prophylaxis
  7. AMITRIPTYLINE [Suspect]
     Active Substance: AMITRIPTYLINE
     Indication: Post-traumatic headache
     Dosage: UNK
     Route: 065
  8. AMITRIPTYLINE [Suspect]
     Active Substance: AMITRIPTYLINE
     Indication: Migraine prophylaxis
  9. BOTOX [Suspect]
     Active Substance: ONABOTULINUMTOXINA
     Indication: Post-traumatic headache
     Dosage: UNK
     Route: 065
  10. BOTOX [Suspect]
     Active Substance: ONABOTULINUMTOXINA
     Indication: Migraine prophylaxis
  11. DIHYDROERGOTAMINE [Suspect]
     Active Substance: DIHYDROERGOTAMINE
     Indication: Post-traumatic headache
     Dosage: 11.25 MILLIGRAM
     Route: 042
  12. DIHYDROERGOTAMINE [Suspect]
     Active Substance: DIHYDROERGOTAMINE
     Indication: Migraine prophylaxis
  13. INDOMETHACIN [Suspect]
     Active Substance: INDOMETHACIN
     Indication: Post-traumatic headache
     Dosage: UNK
     Route: 065
  14. INDOMETHACIN [Suspect]
     Active Substance: INDOMETHACIN
     Indication: Migraine prophylaxis
  15. LIDOCAINE [Suspect]
     Active Substance: LIDOCAINE
     Indication: Post-traumatic headache
     Dosage: UNK
     Route: 042
  16. LIDOCAINE [Suspect]
     Active Substance: LIDOCAINE
     Indication: Migraine prophylaxis
  17. PROPRANOLOL [Suspect]
     Active Substance: PROPRANOLOL HYDROCHLORIDE
     Indication: Post-traumatic headache
     Dosage: UNK
     Route: 065
  18. PROPRANOLOL [Suspect]
     Active Substance: PROPRANOLOL HYDROCHLORIDE
     Indication: Migraine prophylaxis

REACTIONS (2)
  - Treatment failure [Unknown]
  - Off label use [Unknown]
